FAERS Safety Report 20706219 (Version 12)
Quarter: 2024Q4

REPORT INFORMATION
  Report Type: Report from Study
  Country: US (occurrence: US)
  Receive Date: 20220413
  Receipt Date: 20241017
  Transmission Date: 20250114
  Serious: Yes (Other)
  Sender: NOVARTIS
  Company Number: US-NOVARTISTESTPH-NVSC2022US083453

PATIENT
  Age: 56 Year
  Sex: Male

DRUGS (4)
  1. KESIMPTA [Suspect]
     Active Substance: OFATUMUMAB
     Indication: Multiple sclerosis
     Dosage: 20 MG, QMO
     Route: 058
     Dates: start: 20220325
  2. KESIMPTA [Suspect]
     Active Substance: OFATUMUMAB
     Dosage: UNK
     Route: 065
  3. GABAPENTIN [Concomitant]
     Active Substance: GABAPENTIN
     Indication: Neuralgia
     Dosage: UNK
     Route: 065
  4. TESTOSTERONE [Concomitant]
     Active Substance: TESTOSTERONE
     Indication: Blood testosterone decreased
     Dosage: UNK UNK, Q2W
     Route: 065

REACTIONS (11)
  - Multiple sclerosis relapse [Unknown]
  - Feeling abnormal [Recovered/Resolved]
  - Foot fracture [Not Recovered/Not Resolved]
  - Injection site haemorrhage [Unknown]
  - Intervertebral disc protrusion [Unknown]
  - Back pain [Unknown]
  - Muscle spasms [Unknown]
  - Insomnia [Unknown]
  - Device defective [Not Recovered/Not Resolved]
  - Incorrect dose administered by device [Unknown]
  - Accidental exposure to product [Unknown]

NARRATIVE: CASE EVENT DATE: 20220325
